FAERS Safety Report 8310483-2 (Version None)
Quarter: 2012Q2

REPORT INFORMATION
  Report Type: 
  Country: None (occurrence: None)
  Receive Date: 20120425
  Receipt Date: 20120424
  Transmission Date: 20120825
  Serious: Yes (Other)
  Sender: FDA-Public Use
  Company Number: PL-ROCHE-1056056

PATIENT
  Age: 36 Year
  Sex: Female
  Weight: 76 kg

DRUGS (5)
  1. MABTHERA [Suspect]
     Indication: RHEUMATOID ARTHRITIS
     Route: 042
     Dates: start: 20120402, end: 20120402
  2. SOLU-MEDROL [Concomitant]
     Indication: PREMEDICATION
     Route: 042
     Dates: start: 20120402, end: 20120402
  3. PARACETAMOL [Concomitant]
     Indication: PREMEDICATION
     Route: 048
     Dates: start: 20120402, end: 20120402
  4. DIPHERGAN [Concomitant]
     Indication: PREMEDICATION
     Route: 048
     Dates: start: 20120402, end: 20120402
  5. METHOTREXATE [Concomitant]
     Route: 048

REACTIONS (1)
  - VISUAL IMPAIRMENT [None]
